FAERS Safety Report 6887287-0 (Version None)
Quarter: 2010Q3

REPORT INFORMATION
  Report Type: 
  Country: None (occurrence: None)
  Receive Date: 20100730
  Receipt Date: 20100111
  Transmission Date: 20110219
  Serious: No
  Sender: FDA-Public Use
  Company Number: A0690998A

PATIENT
  Age: 49 Year
  Sex: Female

DRUGS (5)
  1. TREXIMET [Suspect]
     Indication: MIGRAINE
     Dosage: 1TAB AS REQUIRED
     Route: 048
  2. IMITREX [Suspect]
     Indication: MIGRAINE
     Dosage: 100MG AS REQUIRED
     Route: 048
     Dates: start: 20070201
  3. UNSPECIFIED MEDICATION [Concomitant]
  4. IBUPROFEN [Concomitant]
  5. EXCEDRIN (MIGRAINE) [Concomitant]

REACTIONS (4)
  - DRUG INEFFECTIVE [None]
  - FACIAL PAIN [None]
  - HEADACHE [None]
  - SINUSITIS [None]
